FAERS Safety Report 7658753-5 (Version None)
Quarter: 2011Q3

REPORT INFORMATION
  Report Type: 
  Country: None (occurrence: None)
  Receive Date: 20110805
  Receipt Date: 20110801
  Transmission Date: 20111222
  Serious: Yes (Other)
  Sender: FDA-Public Use
  Company Number: DE-PFIZER INC-2011176275

PATIENT
  Age: 63 Year
  Sex: Female

DRUGS (4)
  1. PANTOPRAZOLE [Suspect]
     Dosage: UNK
     Dates: start: 20110714, end: 20110714
  2. PROPAFENONE HCL [Concomitant]
     Dosage: 325 MG, 2X/DAY
     Route: 065
     Dates: start: 20110711
  3. CLARITHROMYCIN [Suspect]
     Dosage: UNK
     Route: 065
     Dates: start: 20110714, end: 20110714
  4. AMOXICILLIN [Suspect]
     Dosage: UNK
     Route: 065
     Dates: start: 20110714, end: 20110714

REACTIONS (3)
  - CARDIAC DISORDER [None]
  - PALPITATIONS [None]
  - DRUG INTERACTION [None]
